FAERS Safety Report 12686184 (Version 1)
Quarter: 2016Q3

REPORT INFORMATION
  Report Type: Spontaneous
  Country: US (occurrence: US)
  Receive Date: 20160825
  Receipt Date: 20160825
  Transmission Date: 20161109
  Serious: No
  Sender: FDA-Public Use
  Company Number: US-PERRIGO-16US000501

PATIENT
  Age: 73 Year
  Sex: Female
  Weight: 46.26 kg

DRUGS (3)
  1. NICOTINE POLACRILEX [Suspect]
     Active Substance: NICOTINE
     Indication: SMOKING CESSATION THERAPY
     Dosage: UNKNOWN, UNKNOWN
     Route: 002
     Dates: start: 20101208, end: 201512
  2. NICOTINE POLACRILEX [Suspect]
     Active Substance: NICOTINE
     Dosage: 1/4 LOZENGE, EVERY 1 TO 2 HOURS
     Route: 002
     Dates: start: 201512
  3. SPIRIVA [Concomitant]
     Active Substance: TIOTROPIUM BROMIDE MONOHYDRATE
     Indication: EMPHYSEMA
     Dosage: UNK
     Route: 065
     Dates: start: 20101208

REACTIONS (2)
  - Wrong technique in product usage process [Recovered/Resolved]
  - Dental caries [Unknown]

NARRATIVE: CASE EVENT DATE: 20150706
